FAERS Safety Report 4475301-1 (Version None)
Quarter: 2004Q4

REPORT INFORMATION
  Report Type: 
  Country: None (occurrence: None)
  Receive Date: 20041012
  Receipt Date: 20040929
  Transmission Date: 20050328
  Serious: Yes (Hospitalization, Disabling, Other)
  Sender: FDA-Public Use
  Company Number: 2004236459US

PATIENT
  Sex: Female
  Weight: 68 kg

DRUGS (2)
  1. CELEBREX [Suspect]
     Indication: ARTHRITIS
     Dosage: ORAL
     Route: 048
     Dates: start: 20040601, end: 20040701
  2. ANTIHYPERTENSIVES [Concomitant]

REACTIONS (5)
  - ASTHENIA [None]
  - EPISTAXIS [None]
  - FATIGUE [None]
  - IMPAIRED SELF-CARE [None]
  - PULMONARY OEDEMA [None]
